FAERS Safety Report 17287943 (Version 1)
Quarter: 2020Q1

REPORT INFORMATION
  Report Type: Report from Study
  Country: DE (occurrence: DE)
  Receive Date: 20200120
  Receipt Date: 20200120
  Transmission Date: 20200409
  Serious: Yes (Hospitalization)
  Sender: FDA-Public Use
  Company Number: DE-IPSEN BIOPHARMACEUTICALS, INC.-2020-01228

PATIENT
  Age: 63 Year
  Sex: Female

DRUGS (6)
  1. KREON [Concomitant]
     Active Substance: PANCRELIPASE
     Route: 048
     Dates: start: 201911
  2. CALCIUM FOLINATE [Concomitant]
     Active Substance: LEUCOVORIN CALCIUM
     Indication: PANCREATIC CARCINOMA METASTATIC
     Route: 042
     Dates: start: 20200109, end: 20200109
  3. ONIVYDE [Suspect]
     Active Substance: IRINOTECAN HYDROCHLORIDE
     Indication: PANCREATIC CARCINOMA METASTATIC
     Route: 042
     Dates: start: 20200109, end: 20200109
  4. FLUOROURACIL SODIUM [Concomitant]
     Active Substance: FLUOROURACIL SODIUM
     Indication: PANCREATIC CARCINOMA METASTATIC
     Route: 042
     Dates: start: 20200109, end: 20200109
  5. NORTASE [Concomitant]
     Indication: PANCREATIC FAILURE
     Route: 048
     Dates: start: 201911
  6. KREON [Concomitant]
     Active Substance: PANCRELIPASE
     Indication: PANCREATIC FAILURE
     Route: 048
     Dates: start: 201810

REACTIONS (1)
  - Ileus [Not Recovered/Not Resolved]

NARRATIVE: CASE EVENT DATE: 20200111
